FAERS Safety Report 17725023 (Version 1)
Quarter: 2020Q2

REPORT INFORMATION
  Report Type: Report from Study
  Country: US (occurrence: US)
  Receive Date: 20200429
  Receipt Date: 20200429
  Transmission Date: 20200714
  Serious: Yes (Hospitalization, Other)
  Sender: FDA-Public Use
  Company Number: US-GILEAD-2020-0460627

PATIENT
  Sex: Male

DRUGS (6)
  1. DILTIAZEM. [Concomitant]
     Active Substance: DILTIAZEM
  2. UPTRAVI [Concomitant]
     Active Substance: SELEXIPAG
  3. ELIQUIS [Concomitant]
     Active Substance: APIXABAN
  4. AMBRISENTAN [Suspect]
     Active Substance: AMBRISENTAN
     Indication: PULMONARY ARTERIAL HYPERTENSION
     Dosage: 10 MG, QD
     Route: 048
     Dates: start: 20150922
  5. TYVASO [Suspect]
     Active Substance: TREPROSTINIL
     Indication: PULMONARY ARTERIAL HYPERTENSION
     Dosage: 18-54 ?G, QID
     Route: 055
     Dates: start: 20190124
  6. TADALAFIL. [Concomitant]
     Active Substance: TADALAFIL

REACTIONS (4)
  - Pneumonia [Unknown]
  - Headache [Unknown]
  - Flushing [Unknown]
  - Cardiovascular disorder [Unknown]
